FAERS Safety Report 11272072 (Version 1)
Quarter: 2015Q3

REPORT INFORMATION
  Report Type: Spontaneous
  Country: DE (occurrence: DE)
  Receive Date: 20150715
  Receipt Date: 20150715
  Transmission Date: 20151125
  Serious: Yes (Hospitalization, Other)
  Sender: FDA-Public Use
  Company Number: PHHY2015DE080685

PATIENT
  Age: 54 Year
  Sex: Male

DRUGS (2)
  1. CYCLOPHOSPHAMIDE. [Suspect]
     Active Substance: CYCLOPHOSPHAMIDE
     Indication: ERDHEIM-CHESTER DISEASE
     Dosage: 900 MG, UNK
     Route: 042
     Dates: start: 201210, end: 201301
  2. ACZ885 [Suspect]
     Active Substance: CANAKINUMAB
     Indication: ERDHEIM-CHESTER DISEASE
     Dosage: 150 MG, UNK
     Route: 058
     Dates: start: 201210, end: 201301

REACTIONS (4)
  - Spinal cord neoplasm [Unknown]
  - Off label use [Unknown]
  - Treatment failure [Unknown]
  - Pneumonia [Unknown]
